FAERS Safety Report 9044615 (Version 3)
Quarter: 2013Q1

REPORT INFORMATION
  Report Type: Spontaneous
  Country: AU (occurrence: AU)
  Receive Date: 20130130
  Receipt Date: 20130308
  Transmission Date: 20140127
  Serious: Yes (Hospitalization, Other)
  Sender: FDA-Public Use
  Company Number: AU-ROCHE-1179265

PATIENT
  Age: 65 Year
  Sex: Female

DRUGS (9)
  1. MIRCERA [Suspect]
     Indication: NEPHROGENIC ANAEMIA
     Route: 058
     Dates: start: 20121130
  2. ALDACTONE [Concomitant]
     Route: 065
  3. FRUSEMIDE [Concomitant]
     Route: 065
  4. CARTIA (AUSTRALIA) [Concomitant]
  5. ATACAND [Concomitant]
     Route: 065
  6. LIPITOR [Concomitant]
     Route: 065
  7. NEXIUM [Concomitant]
     Route: 065
  8. SODIBIC [Concomitant]
  9. SYMBICORT [Concomitant]

REACTIONS (2)
  - Wrong technique in drug usage process [Unknown]
  - Haemoglobin decreased [Recovering/Resolving]
